FAERS Safety Report 7283534-4 (Version None)
Quarter: 2011Q1

REPORT INFORMATION
  Report Type: 
  Country: None (occurrence: None)
  Receive Date: 20110209
  Receipt Date: 20110203
  Transmission Date: 20110831
  Serious: Yes (Hospitalization, Other)
  Sender: FDA-Public Use
  Company Number: US-ABBOTT-11P-163-0702497-00

PATIENT
  Sex: Male
  Weight: 68.554 kg

DRUGS (2)
  1. HUMIRA [Suspect]
     Indication: CROHN'S DISEASE
     Route: 058
     Dates: start: 20060601, end: 20100501
  2. HUMIRA [Suspect]
     Route: 058
     Dates: start: 20110101

REACTIONS (5)
  - FISTULA [None]
  - ABDOMINAL PAIN [None]
  - CROHN'S DISEASE [None]
  - INFREQUENT BOWEL MOVEMENTS [None]
  - SMALL INTESTINAL OBSTRUCTION [None]
